FAERS Safety Report 9504215 (Version 2)
Quarter: 2013Q3

REPORT INFORMATION
  Report Type: Spontaneous
  Country: US (occurrence: US)
  Receive Date: 20130906
  Receipt Date: 20130906
  Transmission Date: 20140515
  Serious: No
  Sender: FDA-Public Use
  Company Number: US-TEVA-425989USA

PATIENT
  Age: 5 Year
  Sex: Female

DRUGS (7)
  1. CLARAVIS [Suspect]
     Route: 048
     Dates: start: 20130506, end: 20130729
  2. ACYCLOVIR [Concomitant]
  3. BACTRIM [Concomitant]
  4. FLUCONAZOLE [Concomitant]
  5. GM-CSF [Concomitant]
  6. LEVOQUIN [Concomitant]
  7. VANCOMYCIN [Concomitant]

REACTIONS (1)
  - Vomiting [Recovered/Resolved]
